FAERS Safety Report 5444684-8 (Version None)
Quarter: 2007Q3

REPORT INFORMATION
  Report Type: 
  Country: None (occurrence: None)
  Receive Date: 20070906
  Receipt Date: 20070130
  Transmission Date: 20080115
  Serious: No
  Sender: FDA-Public Use
  Company Number: A0637640A

PATIENT
  Age: 53 Year
  Sex: Female

DRUGS (3)
  1. REQUIP [Suspect]
     Indication: PARKINSON'S DISEASE
     Dosage: 3MG THREE TIMES PER DAY
     Route: 048
  2. SINEMET [Concomitant]
  3. ADALAT [Concomitant]

REACTIONS (3)
  - DYSKINESIA [None]
  - FEELING ABNORMAL [None]
  - MOTOR DYSFUNCTION [None]
